FAERS Safety Report 9242922 (Version 1)
Quarter: 2013Q2

REPORT INFORMATION
  Report Type: Spontaneous
  Country: US (occurrence: US)
  Receive Date: 20130420
  Receipt Date: 20130420
  Transmission Date: 20140414
  Serious: No
  Sender: FDA-Public Use
  Company Number: US-ASTRAZENECA-2013SE19481

PATIENT
  Sex: Female

DRUGS (4)
  1. NEXIUM [Suspect]
     Indication: GASTROOESOPHAGEAL REFLUX DISEASE
     Route: 048
  2. NEXIUM [Suspect]
     Indication: BARRETT^S OESOPHAGUS
     Route: 048
  3. OTHER MEDICATIONS [Suspect]
     Route: 065
  4. LISINOPRIL [Concomitant]

REACTIONS (2)
  - Dyspepsia [Unknown]
  - Intentional drug misuse [Unknown]
